FAERS Safety Report 5584610-4 (Version None)
Quarter: 2008Q1

REPORT INFORMATION
  Report Type: 
  Country: None (occurrence: None)
  Receive Date: 20080103
  Receipt Date: 20071217
  Transmission Date: 20080703
  Serious: Yes (Other)
  Sender: FDA-Public Use
  Company Number: E3810-01473-SPO-ES

PATIENT
  Age: 55 Year
  Sex: Female

DRUGS (2)
  1. RABEPRAZOLE SODIUM [Suspect]
     Indication: GASTROINTESTINAL DISORDER THERAPY
     Dosage: 20 MG, 1 IN 1 D, ORAL
     Route: 048
     Dates: start: 20071101, end: 20071101
  2. DEXAMETHASONE TAB [Suspect]
     Indication: SCIATICA
     Dosage: 8 MG, 1 IN  1 D
     Dates: start: 20071101

REACTIONS (1)
  - HAEMATOMA [None]
